FAERS Safety Report 5382098-X (Version None)
Quarter: 2007Q3

REPORT INFORMATION
  Report Type: 
  Country: None (occurrence: None)
  Receive Date: 20070709
  Receipt Date: 20070703
  Transmission Date: 20080115
  Serious: Yes (Death, Hospitalization)
  Sender: FDA-Public Use
  Company Number: GB-ASTRAZENECA-2007GB00614

PATIENT
  Age: 58 Year
  Sex: Male

DRUGS (8)
  1. QUETIAPINE [Suspect]
     Indication: DEMENTIA
     Route: 048
     Dates: end: 20070207
  2. QUETIAPINE [Suspect]
     Route: 048
     Dates: start: 20070201
  3. APO-GO [Suspect]
     Indication: PARKINSON'S DISEASE
     Dosage: TEN HOUR INFUSIONS, BID
     Route: 058
     Dates: end: 20070207
  4. APO-GO [Suspect]
     Dosage: 160 MG, EVERY 24 HOURS
     Route: 058
     Dates: start: 20070101
  5. CO-CARELDOPA [Suspect]
     Indication: PARKINSON'S DISEASE
     Dosage: 125MG ELEVEN TIMES DAILY
     Route: 048
  6. CO-CARELDOPA [Suspect]
     Dosage: 125 MG ELEVEN TIME A DAY
     Route: 048
     Dates: start: 20070201
  7. RIVASTIGMINE [Concomitant]
     Indication: DEMENTIA
     Route: 065
     Dates: end: 20070207
  8. RIVASTIGMINE [Concomitant]
     Route: 065
     Dates: start: 20070201

REACTIONS (3)
  - DEMENTIA [None]
  - PARKINSON'S DISEASE [None]
  - PRIAPISM [None]
